FAERS Safety Report 12634118 (Version 1)
Quarter: 2016Q3

REPORT INFORMATION
  Report Type: Spontaneous
  Country: US (occurrence: US)
  Receive Date: 20160808
  Receipt Date: 20160808
  Transmission Date: 20161109
  Serious: Yes (Hospitalization)
  Sender: FDA-Public Use
  Company Number: US-MYLANLABS-2016M1032370

PATIENT

DRUGS (1)
  1. IBANDRONATE [Suspect]
     Active Substance: IBANDRONATE SODIUM
     Indication: OSTEOPOROSIS
     Route: 065
     Dates: start: 2008

REACTIONS (2)
  - Periprosthetic fracture [Recovered/Resolved]
  - Fracture nonunion [Recovered/Resolved]

NARRATIVE: CASE EVENT DATE: 201202
